FAERS Safety Report 24652934 (Version 6)
Quarter: 2025Q4

REPORT INFORMATION
  Report Type: Spontaneous
  Country: EU (occurrence: EU)
  Receive Date: 20241122
  Receipt Date: 20251215
  Transmission Date: 20260117
  Serious: Yes (Hospitalization, Other)
  Sender: ELI LILLY AND COMPANY
  Company Number: EU-HIKMA PHARMACEUTICALS-ES-H14001-24-10250

PATIENT
  Age: 75 Year
  Sex: Male
  Weight: 105.3 kg

DRUGS (52)
  1. PEMETREXED [Suspect]
     Active Substance: PEMETREXED
     Indication: Non-small cell lung cancer
     Dosage: 500 MG/M2, OTHER (ONCE EVERY THREE WEEKS)
     Route: 042
     Dates: start: 20241002, end: 20241002
  2. PEMETREXED [Suspect]
     Active Substance: PEMETREXED
     Dosage: 500 MG/M2, UNKNOWN
     Route: 042
     Dates: start: 20241204, end: 20241204
  3. PEMETREXED [Suspect]
     Active Substance: PEMETREXED
     Dosage: 500 MG/M2, UNKNOWN
     Route: 042
     Dates: start: 20241224, end: 20241224
  4. PEMETREXED [Suspect]
     Active Substance: PEMETREXED
     Dosage: 500 MG/M2, UNKNOWN
     Route: 042
     Dates: start: 20250122, end: 20250122
  5. PEMETREXED [Suspect]
     Active Substance: PEMETREXED
     Dosage: 500 MG/M2, UNKNOWN
     Route: 042
     Dates: start: 20250212, end: 20250212
  6. PEMETREXED [Suspect]
     Active Substance: PEMETREXED
     Dosage: 500 MG/M2, UNKNOWN
     Route: 042
     Dates: start: 20250305, end: 20250305
  7. PEMETREXED [Suspect]
     Active Substance: PEMETREXED
     Dosage: 500 MG/M2, UNKNOWN
     Route: 042
     Dates: start: 20250416, end: 20250416
  8. PEMETREXED [Suspect]
     Active Substance: PEMETREXED
     Dosage: 500 MG/M2, UNKNOWN
     Route: 042
     Dates: start: 20250507, end: 20250507
  9. PEMETREXED [Suspect]
     Active Substance: PEMETREXED
     Dosage: 500 MG/M2, UNKNOWN
     Route: 042
     Dates: start: 20250528, end: 20250528
  10. PEMETREXED [Suspect]
     Active Substance: PEMETREXED
     Dosage: 500 MG/M2, UNKNOWN
     Route: 042
     Dates: start: 20250618, end: 20250618
  11. PEMETREXED [Suspect]
     Active Substance: PEMETREXED
     Dosage: 500 MG/M2, UNKNOWN
     Route: 042
     Dates: start: 20250708, end: 20250708
  12. PEMETREXED [Suspect]
     Active Substance: PEMETREXED
     Dosage: 500 MG/M2, UNKNOWN
     Route: 042
     Dates: start: 20250729, end: 20250729
  13. PEMETREXED [Suspect]
     Active Substance: PEMETREXED
     Dosage: 500 MG/M2, UNKNOWN
     Route: 042
     Dates: start: 20250819, end: 20250819
  14. PEMETREXED [Suspect]
     Active Substance: PEMETREXED
     Dosage: 500 MG/M2, UNKNOWN
     Route: 042
     Dates: start: 20250909, end: 20250909
  15. PEMETREXED [Suspect]
     Active Substance: PEMETREXED
     Dosage: 500 MG/M2, UNKNOWN
     Route: 042
     Dates: start: 20250930, end: 20250930
  16. CARBOPLATIN [Suspect]
     Active Substance: CARBOPLATIN
     Indication: Non-small cell lung cancer
     Dosage: 629 MG, OTHER (EVERY THREE WEEKS)
     Route: 042
     Dates: start: 20241002, end: 20241002
  17. CARBOPLATIN [Suspect]
     Active Substance: CARBOPLATIN
     Dosage: 629 MG, UNKNOWN
     Route: 042
     Dates: start: 20241204, end: 20241204
  18. CARBOPLATIN [Suspect]
     Active Substance: CARBOPLATIN
     Dosage: 629 MG, UNKNOWN
     Route: 042
     Dates: start: 20241224, end: 20241224
  19. VUDALIMAB [Suspect]
     Active Substance: VUDALIMAB
     Indication: Non-small cell lung cancer
     Dosage: 500 MG, OTHER (EVERY THREE WEEKS)
     Route: 042
     Dates: start: 20241002, end: 20241002
  20. VUDALIMAB [Suspect]
     Active Substance: VUDALIMAB
     Dosage: 500 MG, OTHER (EVERY THREE WEEKS)
     Route: 042
     Dates: start: 20241106, end: 20241106
  21. VUDALIMAB [Suspect]
     Active Substance: VUDALIMAB
     Dosage: 78 ML, UNKNOWN
     Route: 042
     Dates: start: 20241106
  22. VUDALIMAB [Suspect]
     Active Substance: VUDALIMAB
     Dosage: 500 MG, OTHER (EVERY TWO WEEKS)
     Route: 042
     Dates: start: 20241204, end: 20241204
  23. VUDALIMAB [Suspect]
     Active Substance: VUDALIMAB
     Dosage: 500 MG, OTHER (EVERY THREE WEEKS)
     Route: 042
     Dates: start: 20241224, end: 20241224
  24. VUDALIMAB [Suspect]
     Active Substance: VUDALIMAB
     Dosage: 500 MG, OTHER (EVERY THREE WEEKS)
     Route: 042
     Dates: start: 20250122, end: 20250122
  25. VUDALIMAB [Suspect]
     Active Substance: VUDALIMAB
     Dosage: 500 MG, OTHER (EVERY THREE WEEKS)
     Route: 042
     Dates: start: 20250212, end: 20250212
  26. VUDALIMAB [Suspect]
     Active Substance: VUDALIMAB
     Dosage: 500 MG, OTHER (EVERY THREE WEEKS)
     Route: 042
     Dates: start: 20250305, end: 20250305
  27. VUDALIMAB [Suspect]
     Active Substance: VUDALIMAB
     Dosage: 500 MG, OTHER (EVERY THREE WEEKS)
     Route: 042
     Dates: start: 20250326, end: 20250326
  28. VUDALIMAB [Suspect]
     Active Substance: VUDALIMAB
     Dosage: 500 MG, OTHER (EVERY THREE WEEKS)
     Route: 042
     Dates: start: 20250416, end: 20250416
  29. VUDALIMAB [Suspect]
     Active Substance: VUDALIMAB
     Dosage: 500 MG, OTHER (EVERY THREE WEEKS)
     Route: 042
     Dates: start: 20250507, end: 20250507
  30. VUDALIMAB [Suspect]
     Active Substance: VUDALIMAB
     Dosage: 500 MG, OTHER (EVERY THREE WEEKS)
     Route: 042
     Dates: start: 20250528, end: 20250528
  31. VUDALIMAB [Suspect]
     Active Substance: VUDALIMAB
     Dosage: 500 MG, OTHER (EVERY THREE WEEKS)
     Route: 042
     Dates: start: 20250618, end: 20250618
  32. VUDALIMAB [Suspect]
     Active Substance: VUDALIMAB
     Dosage: 500 MG, OTHER (EVERY THREE WEEKS)
     Route: 042
     Dates: start: 20250708, end: 20250708
  33. VUDALIMAB [Suspect]
     Active Substance: VUDALIMAB
     Dosage: 500 MG, OTHER (EVERY THREE WEEKS)
     Route: 042
     Dates: start: 20250729, end: 20250729
  34. VUDALIMAB [Suspect]
     Active Substance: VUDALIMAB
     Dosage: 500 MG, OTHER (EVERY THREE WEEKS)
     Route: 042
     Dates: start: 20250819, end: 20250819
  35. VUDALIMAB [Suspect]
     Active Substance: VUDALIMAB
     Dosage: 500 MG, OTHER (EVERY THREE WEEKS)
     Route: 042
     Dates: start: 20250909, end: 20250909
  36. VUDALIMAB [Suspect]
     Active Substance: VUDALIMAB
     Dosage: 500 MG, OTHER (EVERY THREE WEEKS)
     Route: 042
     Dates: start: 20250930, end: 20250930
  37. HYDROCHLOROTHIAZIDE [Concomitant]
     Active Substance: HYDROCHLOROTHIAZIDE
     Indication: Product used for unknown indication
     Dosage: UNK UNK, UNKNOWN
     Route: 065
     Dates: start: 2004
  38. OLMESARTAN [Concomitant]
     Active Substance: OLMESARTAN
     Indication: Product used for unknown indication
     Dosage: UNK UNK, UNKNOWN
     Dates: start: 2004
  39. AMLODIPINE [Concomitant]
     Active Substance: AMLODIPINE BESYLATE
     Indication: Hypertension
     Dosage: UNK UNK, UNKNOWN
     Route: 065
     Dates: start: 2004
  40. METFORMIN [Concomitant]
     Active Substance: METFORMIN HYDROCHLORIDE
     Indication: Type 2 diabetes mellitus
     Dosage: UNK UNK, UNKNOWN
     Route: 065
     Dates: start: 2004
  41. BISOPROLOL [Concomitant]
     Active Substance: BISOPROLOL
     Indication: Myocardial ischaemia
     Dosage: UNK UNK, UNKNOWN
     Route: 065
     Dates: start: 2009
  42. OMEPRAZOLE [Concomitant]
     Active Substance: OMEPRAZOLE
     Indication: Prophylaxis
     Dosage: UNK UNK, UNKNOWN
     Route: 065
  43. FEBUXOSTAT [Concomitant]
     Active Substance: FEBUXOSTAT
     Indication: Osteitis deformans
     Dosage: UNK UNK, UNKNOWN
     Route: 065
  44. ASPIRIN [Concomitant]
     Active Substance: ASPIRIN
     Indication: Myocardial ischaemia
     Dosage: UNK UNK, UNKNOWN
     Route: 065
     Dates: start: 2009
  45. DULAGLUTIDE [Concomitant]
     Active Substance: DULAGLUTIDE
     Indication: Type 2 diabetes mellitus
     Dosage: UNK UNK, UNKNOWN
     Route: 065
     Dates: start: 2004
  46. ATORVASTATIN [Concomitant]
     Active Substance: ATORVASTATIN
     Indication: Dyslipidaemia
     Dosage: UNK UNK, UNKNOWN
     Route: 065
     Dates: start: 2004
  47. DEXAMETHASONE [Concomitant]
     Active Substance: DEXAMETHASONE
     Indication: Product used for unknown indication
     Dosage: UNK UNK, UNKNOWN
     Route: 065
     Dates: start: 20241002, end: 20241002
  48. AKYNZEO [NETUPITANT;PALONOSETRON HYDROCHLORID [Concomitant]
     Indication: Product used for unknown indication
     Dosage: UNK UNK, UNKNOWN
     Route: 065
     Dates: start: 20241002, end: 20241002
  49. FOLIC ACID [Concomitant]
     Active Substance: FOLIC ACID
     Indication: Prophylaxis
     Dosage: UNK UNK, UNKNOWN
     Route: 065
     Dates: start: 20241001
  50. VITAMIN B12 [Concomitant]
     Active Substance: CYANOCOBALAMIN
     Indication: Prophylaxis
     Dosage: UNK UNK, UNKNOWN
     Route: 065
     Dates: start: 20241001
  51. LINEZOLID [Concomitant]
     Active Substance: LINEZOLID
     Indication: Product used for unknown indication
     Dosage: 600 MG, OTHER EVERY 12 HOURS
     Route: 042
     Dates: start: 20251015
  52. PIPERACILLIN SODIUM\TAZOBACTAM SODIUM [Concomitant]
     Active Substance: PIPERACILLIN SODIUM\TAZOBACTAM SODIUM
     Indication: Evidence based treatment
     Dosage: 4 G, QOD
     Dates: start: 20251014

REACTIONS (15)
  - Chest X-ray abnormal [Unknown]
  - Ultrasound abdomen abnormal [Unknown]
  - Palmar erythema [Unknown]
  - C-reactive protein increased [Unknown]
  - Angina pectoris [Recovered/Resolved]
  - Erythema [Unknown]
  - Blood creatinine increased [Unknown]
  - Cellulitis [Recovered/Resolved]
  - Pyrexia [Recovered/Resolved]
  - Platelet count decreased [Unknown]
  - Influenza [Unknown]
  - Anaemia [Unknown]
  - Rash [Unknown]
  - Neutropenia [Unknown]
  - Thrombocytopenia [Unknown]

NARRATIVE: CASE EVENT DATE: 20241018
